FAERS Safety Report 10801494 (Version 2)
Quarter: 2015Q1

REPORT INFORMATION
  Report Type: Spontaneous
  Country: US (occurrence: US)
  Receive Date: 20150217
  Receipt Date: 20150227
  Transmission Date: 20150721
  Serious: Yes (Other)
  Sender: FDA-Public Use
  Company Number: US-BIOGENIDEC-2015BI017234

PATIENT
  Age: 66 Year
  Sex: Male

DRUGS (12)
  1. BENEFIBER [Concomitant]
     Active Substance: STARCH, WHEAT
  2. AMLODIPINE BESY-BENAZEPRIL HCI [Concomitant]
  3. NOVOLOG MIX 70/30 [Concomitant]
     Active Substance: INSULIN ASPART
  4. AVONEX [Suspect]
     Active Substance: INTERFERON BETA-1A
     Indication: MULTIPLE SCLEROSIS
     Route: 030
  5. GABAPENTIN. [Concomitant]
     Active Substance: GABAPENTIN
  6. POLYETHYLENE GLYCOL [Concomitant]
     Active Substance: POLYETHYLENE GLYCOLS
  7. LANTUS SOLOSTAR [Concomitant]
     Active Substance: INSULIN GLARGINE
  8. GLIMEPIRIDE. [Concomitant]
     Active Substance: GLIMEPIRIDE
  9. AVONEX [Suspect]
     Active Substance: INTERFERON BETA-1A
     Indication: MULTIPLE SCLEROSIS
     Route: 030
  10. VITAMIN D [Concomitant]
     Active Substance: CHOLECALCIFEROL
  11. FOLIC ACID. [Concomitant]
     Active Substance: FOLIC ACID
  12. SERTRALINE HCI [Concomitant]

REACTIONS (1)
  - Hypersensitivity [Unknown]

NARRATIVE: CASE EVENT DATE: 20150126
